FAERS Safety Report 11555943 (Version 3)
Quarter: 2015Q4

REPORT INFORMATION
  Report Type: Report from Study
  Country: US (occurrence: US)
  Receive Date: 20150925
  Receipt Date: 20151120
  Transmission Date: 20160304
  Serious: Yes (Hospitalization, Other)
  Sender: FDA-Public Use
  Company Number: US-BAYER-2015-390045

PATIENT
  Age: 68 Year
  Sex: Female

DRUGS (4)
  1. NEXAVAR [Suspect]
     Active Substance: SORAFENIB
     Indication: HEPATIC CANCER
     Dosage: 200 MG, BID
     Route: 048
     Dates: start: 20150831, end: 20150910
  2. NEXAVAR [Suspect]
     Active Substance: SORAFENIB
     Indication: HEPATIC CANCER
     Dosage: 200 MG, QD
     Route: 048
     Dates: start: 20150721
  3. NEXAVAR [Suspect]
     Active Substance: SORAFENIB
     Indication: HEPATIC CANCER
     Dosage: 400 MG, BID
     Route: 048
     Dates: end: 20150814
  4. NEXAVAR [Suspect]
     Active Substance: SORAFENIB
     Indication: HEPATIC CANCER
     Dosage: 200 MG, BID
     Route: 048
     Dates: start: 20150913

REACTIONS (27)
  - Abdominal pain [None]
  - Gait disturbance [None]
  - Yellow skin [None]
  - Fatigue [None]
  - White blood cell count increased [None]
  - Hyperkeratosis [None]
  - Skin discomfort [None]
  - Peripheral swelling [None]
  - Pain in extremity [None]
  - Pain of skin [None]
  - Drug dose omission [None]
  - Pyrexia [Recovered/Resolved]
  - Diarrhoea [None]
  - Headache [None]
  - Dry skin [None]
  - Skin exfoliation [None]
  - Blood pressure increased [None]
  - Pyrexia [Not Recovered/Not Resolved]
  - Seborrhoeic dermatitis [None]
  - Cough [None]
  - Palmar-plantar erythrodysaesthesia syndrome [None]
  - Epistaxis [None]
  - Pruritus [None]
  - Rash [None]
  - Drug dose omission [None]
  - Blood pressure systolic increased [None]
  - Alopecia [None]

NARRATIVE: CASE EVENT DATE: 20150911
